FAERS Safety Report 10530700 (Version 1)
Quarter: 2014Q4

REPORT INFORMATION
  Report Type: Spontaneous
  Country: TR (occurrence: TR)
  Receive Date: 20141021
  Receipt Date: 20141021
  Transmission Date: 20150528
  Serious: Yes (Disabling, Other)
  Sender: FDA-Public Use
  Company Number: TR-WATSON-2014-22215

PATIENT
  Age: 15 Year
  Sex: Male

DRUGS (3)
  1. TACROLIMUS (UNKNOWN) [Suspect]
     Active Substance: TACROLIMUS
     Indication: RENAL TRANSPLANT
     Dosage: 0.1 MG/KG, DAILY
     Route: 065
  2. PREDNISOLONE. [Concomitant]
     Active Substance: PREDNISOLONE
     Indication: RENAL TRANSPLANT
     Dosage: 0.5 MG/KG, DAILY
     Route: 048
  3. MYCOPHENOLATE MOFETIL. [Concomitant]
     Active Substance: MYCOPHENOLATE MOFETIL
     Indication: RENAL TRANSPLANT
     Dosage: 600 MG/M2, DAILY
     Route: 065

REACTIONS (3)
  - Immunosuppressant drug level increased [Recovered/Resolved]
  - Deafness neurosensory [Recovered/Resolved with Sequelae]
  - Drug interaction [Recovered/Resolved with Sequelae]
